FAERS Safety Report 11073375 (Version 1)
Quarter: 2015Q2

REPORT INFORMATION
  Report Type: Spontaneous
  Country: US (occurrence: US)
  Receive Date: 20150428
  Receipt Date: 20150428
  Transmission Date: 20150821
  Serious: No
  Sender: FDA-Public Use
  Company Number: US-MYLANLABS-2014M1015059

PATIENT
  Age: 69 Year
  Sex: Female

DRUGS (3)
  1. VERAPAMIL HYDROCHLORIDE EXTENDED-RELEASE TABLETS, USP [Suspect]
     Active Substance: VERAPAMIL HYDROCHLORIDE
     Indication: ARRHYTHMIA
     Dosage: 180 MG, QD
     Route: 048
     Dates: start: 20141212, end: 201412
  2. ATIVAN [Concomitant]
     Active Substance: LORAZEPAM
     Dosage: 2 MG, QD
     Route: 048
  3. VERAPAMIL HYDROCHLORIDE EXTENDED-RELEASE TABLETS, USP [Suspect]
     Active Substance: VERAPAMIL HYDROCHLORIDE
     Indication: BLOOD PRESSURE
     Dosage: 180 MG, QD
     Route: 048
     Dates: start: 201412

REACTIONS (2)
  - Arrhythmia [Not Recovered/Not Resolved]
  - Blood pressure systolic increased [Not Recovered/Not Resolved]

NARRATIVE: CASE EVENT DATE: 201412
